FAERS Safety Report 22042002 (Version 1)
Quarter: 2023Q1

REPORT INFORMATION
  Report Type: Other
  Country: None (occurrence: DE)
  Receive Date: 20230227
  Receipt Date: 20230227
  Transmission Date: 20230418
  Serious: Yes (Hospitalization, Other)
  Sender: FDA-Public Use
  Company Number: DE-B.Braun Medical Inc.-2138495

PATIENT
  Age: 14 Year
  Sex: Female

DRUGS (1)
  1. HEPARIN SODIUM IN DEXTROSE [Suspect]
     Active Substance: HEPARIN SODIUM
     Indication: Deep vein thrombosis

REACTIONS (2)
  - Drug ineffective [Unknown]
  - Compartment syndrome [Unknown]
